FAERS Safety Report 16644333 (Version 1)
Quarter: 2019Q3

REPORT INFORMATION
  Report Type: Spontaneous
  Country: LV (occurrence: LV)
  Receive Date: 20190729
  Receipt Date: 20190729
  Transmission Date: 20191004
  Serious: Yes (Other)
  Sender: FDA-Public Use
  Company Number: LV-BAYER-2019-139811

PATIENT
  Age: 53 Year
  Sex: Male
  Weight: 59 kg

DRUGS (4)
  1. AVELOX [Suspect]
     Active Substance: MOXIFLOXACIN HYDROCHLORIDE
     Indication: PRODUCT USED FOR UNKNOWN INDICATION
     Dosage: 400 MG, QD
     Route: 048
     Dates: start: 20171018, end: 20180128
  2. DELTYBA [Suspect]
     Active Substance: DELAMANID
     Indication: PULMONARY TUBERCULOSIS
     Dosage: 100 MG, BID
     Route: 048
     Dates: start: 20180227, end: 20190306
  3. AVELOX [Suspect]
     Active Substance: MOXIFLOXACIN HYDROCHLORIDE
     Indication: PRODUCT USED FOR UNKNOWN INDICATION
     Dosage: 400 MG, QD
     Route: 048
     Dates: start: 20180227, end: 20180606
  4. DELTYBA [Suspect]
     Active Substance: DELAMANID
     Indication: PULMONARY TUBERCULOSIS
     Dosage: 100 MG, BID
     Route: 048
     Dates: start: 20171102, end: 20180128

REACTIONS (14)
  - Hypermetropia [Not Recovered/Not Resolved]
  - Vitamin D deficiency [Not Recovered/Not Resolved]
  - Hangover [Recovered/Resolved]
  - Borderline personality disorder [Not Recovered/Not Resolved]
  - Hypertension [None]
  - Palpitations [Recovered/Resolved]
  - Alcohol abuse [Unknown]
  - Palpitations [None]
  - Arthritis [Recovered/Resolved]
  - Presbyopia [Not Recovered/Not Resolved]
  - Wolff-Parkinson-White syndrome [Recovered/Resolved]
  - Generalised anxiety disorder [Not Recovered/Not Resolved]
  - Spinal osteoarthritis [Recovered/Resolved]
  - Hypertension [Unknown]

NARRATIVE: CASE EVENT DATE: 20171211
